FAERS Safety Report 15160852 (Version 1)
Quarter: 2018Q3

REPORT INFORMATION
  Report Type: Spontaneous
  Country: US (occurrence: US)
  Receive Date: 20180621
  Receipt Date: 20180621
  Transmission Date: 20181010
  Serious: No
  Sender: FDA-Public Use
  Company Number: None

PATIENT
  Age: 77 Year
  Sex: Female

DRUGS (1)
  1. TACROLIMUS. [Suspect]
     Active Substance: TACROLIMUS
     Indication: TRANSPLANT
     Dosage: 0.5 MG IN AM  1 MG IN PM
     Route: 048
     Dates: start: 20161024

REACTIONS (1)
  - Skin cancer [None]

NARRATIVE: CASE EVENT DATE: 20180601
